FAERS Safety Report 24059616 (Version 1)
Quarter: 2024Q3

REPORT INFORMATION
  Report Type: Spontaneous
  Country: ES (occurrence: ES)
  Receive Date: 20240708
  Receipt Date: 20240708
  Transmission Date: 20241017
  Serious: Yes (Life-Threatening, Hospitalization, Other)
  Sender: ZYDUS PHARM
  Company Number: ES-EMA-DD-20240619-7482689-104351

PATIENT

DRUGS (1)
  1. OLMESARTAN [Suspect]
     Active Substance: OLMESARTAN
     Indication: Product used for unknown indication
     Dosage: CHRONIC TREATMENT
     Route: 065

REACTIONS (7)
  - Colitis microscopic [Recovering/Resolving]
  - Gastrointestinal disorder [Recovering/Resolving]
  - Iron deficiency [Unknown]
  - Metabolic acidosis [Unknown]
  - Weight decreased [Recovered/Resolved]
  - Renal failure [Unknown]
  - Diarrhoea [Recovered/Resolved]
